FAERS Safety Report 8883609 (Version 1)
Quarter: 2012Q4

REPORT INFORMATION
  Report Type: 
  Country: US (occurrence: US)
  Receive Date: 20121102
  Receipt Date: 20121102
  Transmission Date: 20130627
  Serious: Yes (Other)
  Sender: FDA-Public Use
  Company Number: US-BRISTOL-MYERS SQUIBB COMPANY-17062290

PATIENT
  Age: 73 Year
  Sex: Male
  Weight: 77 kg

DRUGS (5)
  1. COUMADIN [Suspect]
     Indication: ATRIAL FIBRILLATION
     Dosage: 2mg to 2.5mg about 9-10 years 
Intrup, then took half pill
  2. COUMADIN [Suspect]
     Indication: TRANSIENT ISCHAEMIC ATTACK
     Dosage: 2mg to 2.5mg about 9-10 years 
Intrup, then took half pill
  3. BABY ASPIRIN [Suspect]
     Dosage: stopped
  4. SINEMET [Concomitant]
     Dosage: 25-100mg 4 pills a day
  5. ARICEPT [Concomitant]
     Indication: AMNESIA

REACTIONS (5)
  - Parkinson^s disease [Unknown]
  - Epistaxis [Unknown]
  - International normalised ratio increased [Unknown]
  - Weight decreased [Unknown]
  - Tooth extraction [Unknown]
